FAERS Safety Report 15151438 (Version 2)
Quarter: 2018Q3

REPORT INFORMATION
  Report Type: Not Available
  Country: US (occurrence: US)
  Receive Date: 20180716
  Receipt Date: 20180815
  Transmission Date: 20181010
  Serious: No
  Sender: FDA-Public Use
  Company Number: US-NEUROCRINE BIOSCIENCES INC.-2018NBI02077

PATIENT
  Sex: Female

DRUGS (1)
  1. INGREZZA [Suspect]
     Active Substance: VALBENAZINE
     Indication: TARDIVE DYSKINESIA
     Route: 048
     Dates: start: 20180627, end: 201807

REACTIONS (17)
  - Blood glucose abnormal [Not Recovered/Not Resolved]
  - Wheezing [Unknown]
  - Arthritis [Not Recovered/Not Resolved]
  - Restlessness [Not Recovered/Not Resolved]
  - Fatigue [Not Recovered/Not Resolved]
  - Lacrimation increased [Not Recovered/Not Resolved]
  - Dry mouth [Unknown]
  - Frequent bowel movements [Unknown]
  - Pollakiuria [Unknown]
  - Epistaxis [Unknown]
  - Tardive dyskinesia [Unknown]
  - Restless legs syndrome [Unknown]
  - Thinking abnormal [Not Recovered/Not Resolved]
  - Insomnia [Unknown]
  - Balance disorder [Unknown]
  - Eye pruritus [Unknown]
  - Disturbance in attention [Unknown]

NARRATIVE: CASE EVENT DATE: 2018
